FAERS Safety Report 7996160-6 (Version None)
Quarter: 2011Q4

REPORT INFORMATION
  Report Type: 
  Country: None (occurrence: None)
  Receive Date: 20111220
  Receipt Date: 20111214
  Transmission Date: 20120403
  Serious: Yes (Death)
  Sender: FDA-Public Use
  Company Number: PHHY2011SA109841

PATIENT
  Weight: 68 kg

DRUGS (1)
  1. EXFORGE [Suspect]
     Indication: ESSENTIAL HYPERTENSION
     Dosage: VALSARTAN 160 MG, AMLODIPINE 5MG, UNK
     Route: 048
     Dates: start: 20100701

REACTIONS (2)
  - HYPOTENSION [None]
  - MYOCARDIAL INFARCTION [None]
